FAERS Safety Report 7156649-9 (Version None)
Quarter: 2010Q4

REPORT INFORMATION
  Report Type: 
  Country: None (occurrence: None)
  Receive Date: 20101214
  Receipt Date: 20091110
  Transmission Date: 20110411
  Serious: No
  Sender: FDA-Public Use
  Company Number: US-ASTRAZENECA-2006UW19450

PATIENT
  Sex: Female

DRUGS (5)
  1. CRESTOR [Suspect]
     Route: 048
  2. LIPITOR [Concomitant]
     Route: 048
  3. PRILOSEC [Concomitant]
     Route: 048
  4. FORADIL [Concomitant]
  5. ASMANEX TWISTHALER [Concomitant]

REACTIONS (6)
  - ASTHENIA [None]
  - BLOOD CREATINE PHOSPHOKINASE INCREASED [None]
  - CONCUSSION [None]
  - HEPATIC STEATOSIS [None]
  - MUSCLE SPASMS [None]
  - MYALGIA [None]
